FAERS Safety Report 5031268-9 (Version None)
Quarter: 2006Q2

REPORT INFORMATION
  Report Type: 
  Country: None (occurrence: None)
  Receive Date: 20060619
  Receipt Date: 20060619
  Transmission Date: 20061013
  Serious: Yes (Hospitalization)
  Sender: FDA-Public Use
  Company Number: None

PATIENT
  Age: 48 Year
  Sex: Female
  Weight: 76.2043 kg

DRUGS (3)
  1. TEGRETOL-XR [Suspect]
     Indication: CONVULSION
     Dosage: 1 TAB INCREASE TO 4 2 X FOR 3 DAYS EA PO
     Route: 048
     Dates: start: 20060504, end: 20060522
  2. TEGRETOL-XR [Suspect]
     Indication: MIGRAINE
     Dosage: 1 TAB INCREASE TO 4 2 X FOR 3 DAYS EA PO
     Route: 048
     Dates: start: 20060504, end: 20060522
  3. SULFAMETHOXAZOLE + TRIMETHOPRIM [Suspect]
     Indication: PHARYNGOLARYNGEAL PAIN
     Dosage: 1 TAB 2 X FOR 10 DAYS PO
     Route: 048
     Dates: start: 20060522, end: 20060528

REACTIONS (1)
  - DRUG HYPERSENSITIVITY [None]
